FAERS Safety Report 20349746 (Version 3)
Quarter: 2022Q1

REPORT INFORMATION
  Report Type: Report from Study
  Country: JP (occurrence: JP)
  Receive Date: 20220119
  Receipt Date: 20220225
  Transmission Date: 20220423
  Serious: Yes (Hospitalization)
  Sender: FDA-Public Use
  Company Number: JP-CHUGAI-2022000122

PATIENT
  Age: 80 Year
  Sex: Female
  Weight: 61.5 kg

DRUGS (16)
  1. TOCILIZUMAB [Suspect]
     Active Substance: TOCILIZUMAB
     Indication: Microscopic polyangiitis
     Dosage: 8 ML/KG, ONCE/2WEEKS
     Route: 042
     Dates: start: 20211109, end: 20211223
  2. PREDONINE [Concomitant]
     Active Substance: PREDNISOLONE
     Indication: Microscopic polyangiitis
     Dosage: 46 MILLIGRAM, QD
     Route: 048
     Dates: start: 20211109
  3. PREDONINE [Concomitant]
     Active Substance: PREDNISOLONE
     Dosage: 35 MILLIGRAM, QD
     Route: 048
     Dates: start: 20211210
  4. PREDONINE [Concomitant]
     Active Substance: PREDNISOLONE
     Dosage: 10 MILLIGRAM, TID
     Route: 048
     Dates: start: 20211224
  5. URSO [Concomitant]
     Active Substance: URSODIOL
     Indication: Hepatic steatosis
     Dosage: 50 MILLIGRAM, TID
     Route: 048
     Dates: start: 20211203
  6. VONOPRAZAN FUMARATE [Concomitant]
     Active Substance: VONOPRAZAN FUMARATE
     Indication: Gastritis
     Dosage: 10 MILLIGRAM, QD
     Route: 048
     Dates: start: 20211110
  7. AMLODIPINE BESYLATE [Concomitant]
     Active Substance: AMLODIPINE BESYLATE
     Indication: Hypertension
     Dosage: 12.5 MILLIGRAM, QD
     Route: 048
     Dates: start: 20211217
  8. ATOVAQUONE [Concomitant]
     Active Substance: ATOVAQUONE
     Indication: Infection prophylaxis
     Dosage: 10 MILLILITER, QD
     Route: 048
     Dates: start: 20211207
  9. ROZEREM [Concomitant]
     Active Substance: RAMELTEON
     Indication: Delirium
     Dosage: 8 MILLIGRAM, QD
     Route: 048
     Dates: start: 20211223
  10. BELSOMRA [Concomitant]
     Active Substance: SUVOREXANT
     Indication: Delirium
     Dosage: 10 MILLIGRAM, QD
     Route: 048
     Dates: start: 20211223
  11. ALENDRONATE SODIUM [Concomitant]
     Active Substance: ALENDRONATE SODIUM
     Indication: Osteoporosis prophylaxis
     Dosage: 35 MILLIGRAM, ONCE/WEEK
     Route: 048
     Dates: start: 20211114
  12. LEVOFLOXACIN [Concomitant]
     Active Substance: LEVOFLOXACIN
     Indication: Infection prophylaxis
     Dosage: 1 GTT DROPS, TID
     Route: 047
     Dates: start: 202110
  13. FLUOROMETHOLONE [Concomitant]
     Active Substance: FLUOROMETHOLONE
     Indication: Infection prophylaxis
     Dosage: 1 GTT DROPS, TID
     Route: 047
     Dates: start: 202110
  14. BROMFENAC SODIUM [Concomitant]
     Active Substance: BROMFENAC SODIUM
     Indication: Infection prophylaxis
     Dosage: 1 GTT DROPS, BID
     Route: 047
     Dates: start: 202110
  15. LINAGLIPTIN [Concomitant]
     Active Substance: LINAGLIPTIN
     Indication: Diabetes mellitus
     Dosage: 50 MILLIGRAM, TID
     Route: 048
     Dates: start: 20211111
  16. GLIMEPIRIDE [Concomitant]
     Active Substance: GLIMEPIRIDE
     Indication: Diabetes mellitus
     Dosage: 10 MILLIGRAM, QD
     Route: 048
     Dates: start: 20211223

REACTIONS (1)
  - Large intestine perforation [Recovered/Resolved]

NARRATIVE: CASE EVENT DATE: 20220105
